FAERS Safety Report 7903342-8 (Version None)
Quarter: 2011Q4

REPORT INFORMATION
  Report Type: 
  Country: None (occurrence: None)
  Receive Date: 20111109
  Receipt Date: 20111102
  Transmission Date: 20120403
  Serious: No
  Sender: FDA-Public Use
  Company Number: US-PFIZER INC-2011269322

PATIENT
  Sex: Male
  Weight: 69.388 kg

DRUGS (7)
  1. FENOFIBRATE [Concomitant]
     Indication: BLOOD CHOLESTEROL ABNORMAL
     Dosage: 160 MG, DAILY
  2. NAPROXEN [Concomitant]
     Indication: ARTHRITIS
     Dosage: 220 MG, DAILY
  3. NEURONTIN [Suspect]
     Indication: NEURALGIA
  4. ACETYLSALICYLIC ACID [Concomitant]
     Indication: CARDIAC DISORDER
     Dosage: 81 MG, DAILY
  5. NEURONTIN [Suspect]
     Indication: PARAESTHESIA
     Dosage: HALF TABLET OF 600 MG, DAILY
     Route: 048
     Dates: start: 20111101
  6. LIPITOR [Concomitant]
     Indication: BLOOD CHOLESTEROL ABNORMAL
     Dosage: 80 MG, DAILY
     Route: 048
  7. NEXIUM [Concomitant]
     Indication: GASTROOESOPHAGEAL REFLUX DISEASE
     Dosage: 40 MG, DAILY

REACTIONS (4)
  - FATIGUE [None]
  - ASTHENIA [None]
  - NAUSEA [None]
  - FEELING ABNORMAL [None]
